FAERS Safety Report 5253234-0 (Version None)
Quarter: 2007Q1

REPORT INFORMATION
  Report Type: 
  Country: None (occurrence: None)
  Receive Date: 20070227
  Receipt Date: 20070222
  Transmission Date: 20070707
  Serious: Yes (Death, Congenital Anomaly)
  Sender: FDA-Public Use
  Company Number: 07022022

PATIENT
  Age: 42 Day
  Sex: Male

DRUGS (1)
  1. CARBAMAZEPINE [Suspect]
     Indication: EPILEPSY
     Dosage: ORAL
     Route: 048

REACTIONS (8)
  - CEREBRAL HAEMATOMA [None]
  - CEREBROVASCULAR ARTERIOVENOUS MALFORMATION [None]
  - CONVULSIONS LOCAL [None]
  - DRUG EXPOSURE DURING PREGNANCY [None]
  - DYSMORPHISM [None]
  - HYDROCEPHALUS [None]
  - INTRAVENTRICULAR HAEMORRHAGE [None]
  - MULTIPLE CONGENITAL ABNORMALITIES [None]
